FAERS Safety Report 9890548 (Version 1)
Quarter: 2014Q1

REPORT INFORMATION
  Report Type: Spontaneous
  Country: US (occurrence: None)
  Receive Date: 20140211
  Receipt Date: 20140211
  Transmission Date: 20141002
  Serious: No
  Sender: FDA-Public Use
  Company Number: None

PATIENT
  Age: 56 Year
  Sex: Male
  Weight: 126.74 kg

DRUGS (1)
  1. ZUBSOLV [Suspect]
     Dosage: THREE  QDAY SUBLINGUAL
     Route: 060
     Dates: start: 20131231

REACTIONS (3)
  - Nausea [None]
  - Drug withdrawal syndrome [None]
  - Drug dependence [None]
